FAERS Safety Report 15343334 (Version 1)
Quarter: 2018Q3

REPORT INFORMATION
  Report Type: Spontaneous
  Country: US (occurrence: US)
  Receive Date: 20180903
  Receipt Date: 20180903
  Transmission Date: 20181010
  Serious: No
  Sender: FDA-Public Use
  Company Number: PHEH2018US034586

PATIENT
  Sex: Female
  Weight: 55 kg

DRUGS (1)
  1. KYMRIAH [Suspect]
     Active Substance: TISAGENLECLEUCEL
     Indication: DIFFUSE LARGE B-CELL LYMPHOMA
     Dosage: 43 ML, ONCE/SINGLE
     Route: 065
     Dates: start: 20180709

REACTIONS (1)
  - White blood cell count decreased [Not Recovered/Not Resolved]
